APPROVED DRUG PRODUCT: CITANEST PLAIN DENTAL
Active Ingredient: PRILOCAINE HYDROCHLORIDE
Strength: 4%
Dosage Form/Route: INJECTABLE;INJECTION
Application: N021382 | Product #001
Applicant: DENTSPLY PHARMACEUTICAL INC
Approved: Approved Prior to Jan 1, 1982 | RLD: Yes | RS: No | Type: DISCN